FAERS Safety Report 8891853 (Version 1)
Quarter: 2012Q4

REPORT INFORMATION
  Report Type: Spontaneous
  Country: US (occurrence: None)
  Receive Date: 20121031
  Receipt Date: 20121031
  Transmission Date: 20130627
  Serious: Yes (Hospitalization)
  Sender: FDA-Public Use
  Company Number: AUR-APL-2012-04577

PATIENT
  Sex: Male

DRUGS (15)
  1. METOPROLOL (METOPROLOL) [Suspect]
     Indication: DRUG USE FOR UNKNOWN INDICATION
  2. METOPROLOL (METOPROLOL) [Suspect]
     Indication: DRUG USE FOR UNKNOWN INDICATION
  3. GEMTUZUMAB OZOGAMICIN (GEMTUZUMAB O ZOGAMICIN) [Suspect]
     Indication: ACUTE PROMYELOCYTIC LEUKEMIA
  4. ARSENIC TRIOXIDE (ARSENIC TRIOXIDE) [Suspect]
     Indication: ACUTE PROMYELOCYTIC LEUKEMIA
     Route: 042
     Dates: start: 20120907, end: 20120927
  5. RETINOIC ACID (TRETINOIN) [Suspect]
     Indication: ACUTE PROMYELOCYTIC LEUKEMIA
     Dates: start: 20120907, end: 20120927
  6. NORVASC (AMLODIPINE BESILATE) [Suspect]
     Indication: DRUG USE FOR UNKNOWN INDICATION
  7. CIALIS (TADALAFIL) [Suspect]
     Indication: DRUG USE FOR UNKNOWN INDICATION
  8. CLARITIN (GLICLAZIDE) [Suspect]
     Indication: DRUG USE FOR UNKNOWN INDICATION
  9. RESTORIL (CHLORMEZANONE) [Suspect]
     Indication: DRUG USE FOR UNKNOWN INDICATION
  10. SENOKOT-S (SENOKOT-S) [Suspect]
     Indication: DRUG USE FOR UNKNOWN INDICATION
  11. ZOLMITRIPTAN (ZOLMITRIPTAN) [Suspect]
     Indication: DRUG USE FOR UNKNOWN INDICATION
  12. AUGMENTIN (AUGMENTIN /00756801) [Suspect]
     Indication: DRUG USE FOR UNKNOWN INDICATION
  13. HEPARIN (HEPARIN) [Suspect]
     Indication: DRUG USE FOR UNKNOWN INDICATION
  14. LOVENOX (ENOXAPARIN SODIUM) [Suspect]
     Route: 058
  15. LOVENOX (ENOXAPARIN SODIUM) [Suspect]
     Route: 058

REACTIONS (1)
  - Renal failure acute [None]
